FAERS Safety Report 7976973-7 (Version None)
Quarter: 2011Q4

REPORT INFORMATION
  Report Type: 
  Country: None (occurrence: None)
  Receive Date: 20111213
  Receipt Date: 20111108
  Transmission Date: 20120403
  Serious: No
  Sender: FDA-Public Use
  Company Number: US-AMGEN-USASP2011058385

PATIENT
  Sex: Female

DRUGS (4)
  1. VITAMIN D [Concomitant]
  2. ENBREL [Suspect]
     Indication: PRODUCT USED FOR UNKNOWN INDICATION
     Dosage: 50 MG, QWK
     Dates: start: 20110801
  3. METHOTREXATE [Concomitant]
     Dosage: UNK
  4. MULTIVITAMIN                       /00097801/ [Concomitant]

REACTIONS (6)
  - PYREXIA [None]
  - CHILLS [None]
  - OROPHARYNGEAL PAIN [None]
  - RHINORRHOEA [None]
  - INJECTION SITE ERYTHEMA [None]
  - DYSGEUSIA [None]
